FAERS Safety Report 16735007 (Version 1)
Quarter: 2019Q3

REPORT INFORMATION
  Report Type: Spontaneous
  Country: FR (occurrence: FR)
  Receive Date: 20190823
  Receipt Date: 20190823
  Transmission Date: 20191005
  Serious: Yes (Other)
  Sender: FDA-Public Use
  Company Number: FR-TEVA-2019-FR-1098300

PATIENT
  Age: 6 Decade
  Sex: Female

DRUGS (5)
  1. METYRAPONE [Concomitant]
     Active Substance: METYRAPONE
     Dosage: 3000 MILLIGRAM DAILY; THREE TIMES DAILY
     Route: 065
     Dates: start: 201501
  2. MITOTANE [Suspect]
     Active Substance: MITOTANE
     Indication: CUSHING^S SYNDROME
     Dosage: 1500 MILLIGRAM DAILY;
     Route: 065
  3. KETOCONAZOLE. [Suspect]
     Active Substance: KETOCONAZOLE
     Indication: CUSHING^S SYNDROME
     Dosage: 600 MILLIGRAM DAILY;
     Route: 065
  4. METYRAPONE [Concomitant]
     Active Substance: METYRAPONE
     Indication: CUSHING^S SYNDROME
     Dosage: 1500 MILLIGRAM DAILY; THREE TIMES DAILY; AFTER 2 MONTHS, THE DOSE WAS INCREASED TO 750MG THREE TIMES
     Route: 065
     Dates: start: 201403
  5. METYRAPONE [Concomitant]
     Active Substance: METYRAPONE
     Dosage: 2250 MILLIGRAM DAILY; THREE TIMES DAILY
     Route: 065

REACTIONS (2)
  - Hepatotoxicity [Unknown]
  - Dyslipidaemia [Unknown]
